FAERS Safety Report 16867794 (Version 2)
Quarter: 2020Q1

REPORT INFORMATION
  Report Type: Report from Study
  Country: US (occurrence: US)
  Receive Date: 20190930
  Receipt Date: 20200205
  Transmission Date: 20200409
  Serious: Yes (Hospitalization)
  Sender: FDA-Public Use
  Company Number: US-BAUSCH-BL-2019-018969

PATIENT
  Sex: Female
  Weight: 90.8 kg

DRUGS (7)
  1. XIFAXAN [Suspect]
     Active Substance: RIFAXIMIN
     Indication: HEPATIC CIRRHOSIS
     Route: 048
     Dates: start: 201904, end: 201906
  2. XIFAXAN [Suspect]
     Active Substance: RIFAXIMIN
     Indication: HEPATIC ENCEPHALOPATHY
     Dosage: SUPPOSED TO TAKE 550 MG TWICE A DAY, BUT SHE WAS TAKING 550 MG ONE A DAY
     Route: 048
     Dates: start: 2019
  3. HYDROXYZINE [Concomitant]
     Active Substance: HYDROXYZINE HYDROCHLORIDE
     Indication: PRODUCT USED FOR UNKNOWN INDICATION
  4. FERROUS SULFATE. [Concomitant]
     Active Substance: FERROUS SULFATE
     Indication: PRODUCT USED FOR UNKNOWN INDICATION
  5. LACTULOSE. [Concomitant]
     Active Substance: LACTULOSE
     Indication: HEPATIC ENCEPHALOPATHY
     Dosage: TAKEN REGULARLY FOR HER HEPATIC ENCEPHALOPATHY
  6. SPIRONOLACTONE. [Concomitant]
     Active Substance: SPIRONOLACTONE
     Indication: PRODUCT USED FOR UNKNOWN INDICATION
  7. FENOFIBRATE. [Concomitant]
     Active Substance: FENOFIBRATE
     Indication: PRODUCT USED FOR UNKNOWN INDICATION

REACTIONS (6)
  - Hepatic encephalopathy [Recovered/Resolved]
  - Ammonia increased [Recovered/Resolved]
  - Tremor [Not Recovered/Not Resolved]
  - Inappropriate schedule of product administration [Unknown]
  - Therapy cessation [Unknown]
  - Inability to afford medication [Unknown]

NARRATIVE: CASE EVENT DATE: 2019
